FAERS Safety Report 8433629-4 (Version None)
Quarter: 2012Q2

REPORT INFORMATION
  Report Type: 
  Country: None (occurrence: None)
  Receive Date: 20120613
  Receipt Date: 20120604
  Transmission Date: 20120825
  Serious: Yes (Other)
  Sender: FDA-Public Use
  Company Number: CN-SANOFI-AVENTIS-2012SA036208

PATIENT
  Age: 53 Year
  Sex: Female
  Weight: 55 kg

DRUGS (2)
  1. CLOPIDOGREL BISULFATE [Suspect]
     Indication: ANTIPLATELET THERAPY
     Route: 048
     Dates: start: 20120301
  2. ASPIRIN [Concomitant]
     Indication: ANTIPLATELET THERAPY
     Dosage: DOSE:1 UNIT(S)
     Route: 048
     Dates: start: 20120301

REACTIONS (3)
  - CORONARY ARTERY OCCLUSION [None]
  - CHEST DISCOMFORT [None]
  - BACK PAIN [None]
